FAERS Safety Report 11751880 (Version 1)
Quarter: 2015Q4

REPORT INFORMATION
  Report Type: Spontaneous
  Country: US (occurrence: US)
  Receive Date: 20151118
  Receipt Date: 20151118
  Transmission Date: 20160304
  Serious: No
  Sender: FDA-Public Use
  Company Number: US-AQUA-2014AQU000031

PATIENT
  Sex: Male

DRUGS (1)
  1. VERDESO [Suspect]
     Active Substance: DESONIDE
     Indication: RASH
     Dosage: UNK
     Route: 061

REACTIONS (2)
  - Rash [Not Recovered/Not Resolved]
  - Product quality issue [Not Recovered/Not Resolved]
